FAERS Safety Report 12455596 (Version 1)
Quarter: 2016Q2

REPORT INFORMATION
  Report Type: Spontaneous
  Country: US (occurrence: US)
  Receive Date: 20160610
  Receipt Date: 20160610
  Transmission Date: 20160815
  Serious: No
  Sender: FDA-Public Use
  Company Number: US-BAYER-2016-112048

PATIENT
  Age: 7 Year
  Sex: Female

DRUGS (1)
  1. CHILDREN CLARITIN ALLERGY [Suspect]
     Active Substance: LORATADINE
     Dosage: ONE IN THE MORNING + ONE IN THE LATE

REACTIONS (3)
  - Drug effect incomplete [None]
  - Product use issue [None]
  - Wrong technique in product usage process [None]
